FAERS Safety Report 7694306-0 (Version None)
Quarter: 2011Q3

REPORT INFORMATION
  Report Type: 
  Country: None (occurrence: None)
  Receive Date: 20110819
  Receipt Date: 20110811
  Transmission Date: 20111222
  Serious: Yes (Other)
  Sender: FDA-Public Use
  Company Number: FR-CUBIST-2011S1000392

PATIENT
  Age: 73 Year
  Sex: Female
  Weight: 90 kg

DRUGS (9)
  1. RIFAMPIN [Concomitant]
     Indication: PRODUCT USED FOR UNKNOWN INDICATION
     Dosage: DOSE UNIT:U UNKNOWN
     Route: 065
  2. CUBICIN [Suspect]
     Indication: BACTERAEMIA
     Dosage: DOSE UNIT:U UNKNOWN
     Route: 042
     Dates: start: 20110331, end: 20110409
  3. CUBICIN [Suspect]
     Route: 042
     Dates: start: 20110519, end: 20110525
  4. OFLOXACIN [Concomitant]
     Indication: PRODUCT USED FOR UNKNOWN INDICATION
     Dosage: DOSE UNIT:U UNKNOWN
     Route: 065
  5. CUBICIN [Suspect]
     Indication: STAPHYLOCOCCAL SEPSIS
     Dosage: DOSE UNIT:U UNKNOWN
     Route: 042
     Dates: start: 20110331, end: 20110409
  6. OXYCONTIN [Concomitant]
     Indication: PRODUCT USED FOR UNKNOWN INDICATION
     Dosage: DOSE UNIT:U UNKNOWN
     Route: 065
  7. ZYVOX [Concomitant]
     Indication: PRODUCT USED FOR UNKNOWN INDICATION
     Dosage: DOSE UNIT:U UNKNOWN
     Route: 065
     Dates: start: 20110519, end: 20110525
  8. ESIDRIX [Concomitant]
     Indication: PRODUCT USED FOR UNKNOWN INDICATION
     Dosage: DOSE UNIT:U UNKNOWN
     Route: 065
  9. CUBICIN [Suspect]
     Route: 042
     Dates: start: 20110519, end: 20110525

REACTIONS (4)
  - GENERAL PHYSICAL HEALTH DETERIORATION [None]
  - GAMMA-GLUTAMYLTRANSFERASE ABNORMAL [None]
  - INFLAMMATION [None]
  - EOSINOPHILIC PNEUMONIA [None]
